FAERS Safety Report 5867299-6 (Version None)
Quarter: 2008Q3

REPORT INFORMATION
  Report Type: 
  Country: None (occurrence: None)
  Receive Date: 20080829
  Receipt Date: 20080829
  Transmission Date: 20090109
  Serious: Yes (Hospitalization)
  Sender: FDA-Public Use
  Company Number: None

PATIENT
  Sex: Male
  Weight: 85.4 kg

DRUGS (9)
  1. CARBOPLATIN [Suspect]
     Dosage: 2200 MG
  2. TAXOL [Suspect]
     Dosage: 1004 MG
  3. CLOPIDOGREL [Concomitant]
  4. LACTULOSE [Concomitant]
  5. OMEPRAZOLE [Concomitant]
  6. SENOKOT [Concomitant]
  7. SODIUM DOCUSATE [Concomitant]
  8. SUCRALFATE [Concomitant]
  9. ZOPICLONE [Concomitant]

REACTIONS (9)
  - BIOPSY MUCOSA ABNORMAL [None]
  - DYSPHAGIA [None]
  - DYSPHASIA [None]
  - NECROSIS [None]
  - OESOPHAGEAL DISORDER [None]
  - OESOPHAGEAL ULCER [None]
  - PURULENCE [None]
  - RADIATION INJURY [None]
  - THERAPEUTIC AGENT TOXICITY [None]
